FAERS Safety Report 8927110 (Version 1)
Quarter: 2012Q4

REPORT INFORMATION
  Report Type: 
  Country: US (occurrence: US)
  Receive Date: 20121127
  Receipt Date: 20121127
  Transmission Date: 20130627
  Serious: No
  Sender: FDA-Public Use
  Company Number: US-MYLANLABS-2012S1019571

PATIENT
  Age: 19 Year
  Sex: Male

DRUGS (1)
  1. MONTELUKAST SODIUM [Suspect]
     Route: 048
     Dates: start: 201209

REACTIONS (3)
  - Drug effect decreased [Not Recovered/Not Resolved]
  - Product substitution issue [None]
  - Product quality issue [None]
